FAERS Safety Report 10094002 (Version 5)
Quarter: 2014Q4

REPORT INFORMATION
  Report Type: Report from Study
  Country: SE (occurrence: SE)
  Receive Date: 20140422
  Receipt Date: 20141217
  Transmission Date: 20150528
  Serious: Yes (Hospitalization)
  Sender: FDA-Public Use
  Company Number: SE-ROCHE-1385108

PATIENT
  Age: 82 Year
  Sex: Male

DRUGS (18)
  1. RANIBIZUMAB [Suspect]
     Active Substance: RANIBIZUMAB
     Dosage: 50 UL, SINGLE DOSE
     Route: 050
     Dates: start: 20130612, end: 20130612
  2. RANIBIZUMAB [Suspect]
     Active Substance: RANIBIZUMAB
     Dosage: 50 UL, SINGLE DOSE
     Route: 050
     Dates: start: 20131009, end: 20131009
  3. RANIBIZUMAB [Suspect]
     Active Substance: RANIBIZUMAB
     Dosage: 50 UL, SINGLE DOSE
     Route: 050
     Dates: start: 20140204, end: 20140204
  4. FURIX [Concomitant]
     Active Substance: FUROSEMIDE
     Route: 065
     Dates: start: 20140210
  5. RANIBIZUMAB [Suspect]
     Active Substance: RANIBIZUMAB
     Dosage: 50 UL, SINGLE DOSE
     Route: 050
     Dates: start: 20140305, end: 20140305
  6. RANIBIZUMAB [Suspect]
     Active Substance: RANIBIZUMAB
     Route: 050
     Dates: start: 20140528, end: 20140528
  7. RANIBIZUMAB [Suspect]
     Active Substance: RANIBIZUMAB
     Dosage: 50 UL, SINGLE DOSE
     Route: 050
     Dates: start: 20130508, end: 20130508
  8. RANIBIZUMAB [Suspect]
     Active Substance: RANIBIZUMAB
     Dosage: 50 UL, SINGLE DOSE
     Route: 050
     Dates: start: 20130809, end: 20130809
  9. RANIBIZUMAB [Suspect]
     Active Substance: RANIBIZUMAB
     Dosage: 50 UL, SINGLE DOSE
     Route: 050
     Dates: start: 20131106, end: 20131106
  10. RANIBIZUMAB [Suspect]
     Active Substance: RANIBIZUMAB
     Dosage: 50 UL, SINGLE DOSE
     Route: 050
     Dates: start: 20140108, end: 20140108
  11. SELOKEN [Concomitant]
     Active Substance: METOPROLOL
     Route: 065
     Dates: start: 20101204
  12. STILNOCT [Concomitant]
     Active Substance: ZOLPIDEM TARTRATE
     Route: 065
     Dates: start: 20131206
  13. RANIBIZUMAB [Suspect]
     Active Substance: RANIBIZUMAB
     Dosage: 50 UL, SINGLE DOSE
     Route: 050
     Dates: start: 20130710, end: 20130710
  14. RANIBIZUMAB [Suspect]
     Active Substance: RANIBIZUMAB
     Dosage: 50 UL, SINGLE DOSE
     Route: 050
     Dates: start: 20130909, end: 20130909
  15. WARAN [Concomitant]
     Active Substance: WARFARIN SODIUM
     Route: 065
     Dates: start: 20091201, end: 20140402
  16. PREDNISOLON [Concomitant]
     Active Substance: PREDNISOLONE
     Route: 065
     Dates: start: 20000101
  17. RANIBIZUMAB [Suspect]
     Active Substance: RANIBIZUMAB
     Indication: RETINAL VEIN OCCLUSION
     Dosage: 50 UL, SINGLE DOSE
     Route: 050
     Dates: start: 20130408, end: 20130408
  18. SYMBICORT [Concomitant]
     Active Substance: BUDESONIDE\FORMOTEROL FUMARATE DIHYDRATE
     Route: 065
     Dates: start: 20050101

REACTIONS (1)
  - Transient ischaemic attack [Recovered/Resolved]

NARRATIVE: CASE EVENT DATE: 20140402
